FAERS Safety Report 7240100-4 (Version None)
Quarter: 2011Q1

REPORT INFORMATION
  Report Type: 
  Country: None (occurrence: None)
  Receive Date: 20110113
  Receipt Date: 20101228
  Transmission Date: 20110831
  Serious: Yes (Other)
  Sender: FDA-Public Use
  Company Number: 20100586

PATIENT
  Age: 59 Year
  Sex: Female

DRUGS (1)
  1. DEXAMETHASONE SODIUM PHOSPHATE [Suspect]
     Indication: PAIN IN EXTREMITY
     Dosage: IONTOPHORESIS
     Route: 044
     Dates: start: 20100913, end: 20100915

REACTIONS (5)
  - PRURITUS [None]
  - OFF LABEL USE [None]
  - BLISTER [None]
  - SKIN EXFOLIATION [None]
  - SKIN ODOUR ABNORMAL [None]
